FAERS Safety Report 9931783 (Version 1)
Quarter: 2014Q1

REPORT INFORMATION
  Report Type: Spontaneous
  Country: US (occurrence: US)
  Receive Date: 20140228
  Receipt Date: 20140228
  Transmission Date: 20141002
  Serious: No
  Sender: FDA-Public Use
  Company Number: US-009507513-1402USA008905

PATIENT
  Sex: Female

DRUGS (2)
  1. VYTORIN [Suspect]
     Dosage: 1 TABLET, HS
     Route: 048
     Dates: start: 20080903
  2. VYTORIN [Suspect]
     Route: 048

REACTIONS (4)
  - Incorrect dose administered [Unknown]
  - Drug dispensing error [Unknown]
  - No adverse event [Unknown]
  - Product commingling [Unknown]
